FAERS Safety Report 25498818 (Version 1)
Quarter: 2025Q3

REPORT INFORMATION
  Report Type: Spontaneous
  Country: US (occurrence: US)
  Receive Date: 20250701
  Receipt Date: 20250701
  Transmission Date: 20251020
  Serious: Yes (Life-Threatening, Hospitalization)
  Sender: ACCORD
  Company Number: US-MLMSERVICE-20250612-PI542836-00306-1

PATIENT
  Age: 31 Year
  Sex: Female

DRUGS (1)
  1. TACROLIMUS [Suspect]
     Active Substance: TACROLIMUS
     Indication: Immunosuppressant drug therapy

REACTIONS (2)
  - Hyperammonaemia [Recovered/Resolved]
  - Posterior reversible encephalopathy syndrome [Recovering/Resolving]
